FAERS Safety Report 9143589 (Version 3)
Quarter: 2013Q2

REPORT INFORMATION
  Report Type: Spontaneous
  Country: FI (occurrence: FI)
  Receive Date: 20130306
  Receipt Date: 20130610
  Transmission Date: 20140414
  Serious: Yes (Death, Hospitalization, Other)
  Sender: FDA-Public Use
  Company Number: FI-ROCHE-1198304

PATIENT
  Age: 77 Year
  Sex: Female

DRUGS (2)
  1. MABTHERA [Suspect]
     Indication: RHEUMATOID ARTHRITIS
     Route: 042
     Dates: start: 20120511, end: 20120525
  2. MABTHERA [Suspect]
     Route: 042
     Dates: start: 20120525, end: 20120525

REACTIONS (8)
  - Pneumonia aspiration [Fatal]
  - Meningeal neoplasm [Fatal]
  - Dyspnoea [Unknown]
  - Pulmonary embolism [Unknown]
  - Loss of consciousness [Unknown]
  - General physical health deterioration [Unknown]
  - Convulsion [Unknown]
  - Urinary tract infection [Unknown]
